FAERS Safety Report 9812606 (Version 3)
Quarter: 2014Q2

REPORT INFORMATION
  Report Type: Report from Study
  Country: JP (occurrence: JP)
  Receive Date: 20140113
  Receipt Date: 20140402
  Transmission Date: 20141212
  Serious: Yes (Other)
  Sender: FDA-Public Use
  Company Number: JP-CELGENEUS-087-21880-11023121

PATIENT
  Age: 62 Year
  Sex: Male

DRUGS (129)
  1. REVLIMID [Suspect]
     Indication: PLASMA CELL MYELOMA
     Dosage: 10 MILLIGRAM
     Route: 048
     Dates: start: 20101018, end: 20101107
  2. REVLIMID [Suspect]
     Dosage: 10 MILLIGRAM
     Route: 048
     Dates: start: 20101118, end: 20101208
  3. REVLIMID [Suspect]
     Dosage: 5 MILLIGRAM
     Route: 048
     Dates: start: 20101216, end: 20110105
  4. REVLIMID [Suspect]
     Dosage: 5 MILLIGRAM
     Route: 048
     Dates: start: 20110113, end: 20110202
  5. REVLIMID [Suspect]
     Dosage: 5 MILLIGRAM
     Route: 048
     Dates: start: 20110210, end: 20110301
  6. REVLIMID [Suspect]
     Dosage: 5 MILLIGRAM
     Route: 048
     Dates: start: 20110310, end: 20110330
  7. REVLIMID [Suspect]
     Dosage: 5 MILLIGRAM
     Route: 048
     Dates: start: 20110407, end: 20110427
  8. REVLIMID [Suspect]
     Dosage: 5 MILLIGRAM
     Route: 048
     Dates: start: 20110512, end: 20110601
  9. REVLIMID [Suspect]
     Dosage: 5 MILLIGRAM
     Route: 048
     Dates: start: 20110609, end: 20110629
  10. REVLIMID [Suspect]
     Dosage: 5 MILLIGRAM
     Route: 048
     Dates: start: 20110707, end: 20110726
  11. REVLIMID [Suspect]
     Dosage: 5 MILLIGRAM
     Route: 048
     Dates: start: 20110804, end: 20110824
  12. REVLIMID [Suspect]
     Dosage: 5 MILLIGRAM
     Route: 048
     Dates: start: 20110901, end: 20110921
  13. REVLIMID [Suspect]
     Dosage: 5 MILLIGRAM
     Route: 048
     Dates: start: 20110929, end: 20111019
  14. REVLIMID [Suspect]
     Dosage: 5 MILLIGRAM
     Route: 048
     Dates: start: 20111027, end: 20111116
  15. REVLIMID [Suspect]
     Dosage: 5 MILLIGRAM
     Route: 048
     Dates: start: 20111124, end: 20111214
  16. REVLIMID [Suspect]
     Dosage: 5 MILLIGRAM
     Route: 048
     Dates: start: 20111222, end: 20120111
  17. REVLIMID [Suspect]
     Dosage: 5 MILLIGRAM
     Route: 048
     Dates: start: 20120119, end: 20120208
  18. REVLIMID [Suspect]
     Dosage: 5 MILLIGRAM
     Route: 048
     Dates: start: 20120216, end: 20120307
  19. REVLIMID [Suspect]
     Dosage: 5 MILLIGRAM
     Route: 048
     Dates: start: 20120315, end: 20120404
  20. REVLIMID [Suspect]
     Dosage: 5 MILLIGRAM
     Route: 048
     Dates: start: 20120412, end: 20120502
  21. REVLIMID [Suspect]
     Dosage: 5 MILLIGRAM
     Route: 048
     Dates: start: 20120510, end: 20120530
  22. REVLIMID [Suspect]
     Dosage: 5 MILLIGRAM
     Route: 048
     Dates: start: 20120607, end: 20120627
  23. REVLIMID [Suspect]
     Dosage: 5 MILLIGRAM
     Route: 048
     Dates: start: 20120705, end: 20120725
  24. REVLIMID [Suspect]
     Dosage: 5 MILLIGRAM
     Route: 048
     Dates: start: 20120802, end: 20120822
  25. REVLIMID [Suspect]
     Dosage: 5 MILLIGRAM
     Route: 048
     Dates: start: 20120830, end: 20120919
  26. REVLIMID [Suspect]
     Dosage: 5 MILLIGRAM
     Route: 048
     Dates: start: 20120927, end: 20121017
  27. REVLIMID [Suspect]
     Dosage: 5 MILLIGRAM
     Route: 048
     Dates: start: 20121025, end: 20121114
  28. REVLIMID [Suspect]
     Dosage: 5 MILLIGRAM
     Route: 048
     Dates: start: 20121122, end: 20121212
  29. REVLIMID [Suspect]
     Dosage: 5 MILLIGRAM
     Route: 048
     Dates: start: 20121220, end: 20130109
  30. REVLIMID [Suspect]
     Dosage: 5 MILLIGRAM
     Route: 048
     Dates: start: 20130117, end: 20130206
  31. REVLIMID [Suspect]
     Dosage: 5 MILLIGRAM
     Route: 048
     Dates: start: 20130214, end: 20130306
  32. REVLIMID [Suspect]
     Dosage: 5 MILLIGRAM
     Route: 048
     Dates: start: 20130314, end: 20130403
  33. REVLIMID [Suspect]
     Dosage: 5 MILLIGRAM
     Route: 048
     Dates: start: 20130411, end: 20130501
  34. REVLIMID [Suspect]
     Dosage: 5 MILLIGRAM
     Route: 048
     Dates: start: 20130509, end: 20130529
  35. REVLIMID [Suspect]
     Dosage: 5 MILLIGRAM
     Route: 048
     Dates: start: 20130606, end: 20130626
  36. REVLIMID [Suspect]
     Dosage: 5 MILLIGRAM
     Route: 048
     Dates: start: 20130704, end: 20130724
  37. REVLIMID [Suspect]
     Dosage: 5 MILLIGRAM
     Route: 048
     Dates: start: 20130731, end: 20130820
  38. REVLIMID [Suspect]
     Dosage: 5 MILLIGRAM
     Route: 048
     Dates: start: 20130828, end: 20130917
  39. REVLIMID [Suspect]
     Dosage: 5 MILLIGRAM
     Route: 048
     Dates: start: 20130925, end: 20131015
  40. REVLIMID [Suspect]
     Dosage: 5 MILLIGRAM
     Route: 048
     Dates: start: 20131023, end: 20131112
  41. LENADEX [Suspect]
     Indication: PLASMA CELL MYELOMA
     Route: 048
     Dates: start: 20101018, end: 20101101
  42. LENADEX [Suspect]
     Dosage: 20 MILLIGRAM
     Route: 048
     Dates: start: 20101118, end: 20101119
  43. LENADEX [Suspect]
     Dosage: 20 MILLIGRAM
     Route: 048
     Dates: start: 20101202, end: 20101202
  44. LENADEX [Suspect]
     Dosage: 20 MILLIGRAM
     Route: 048
     Dates: start: 20101216, end: 20101217
  45. LENADEX [Suspect]
     Dosage: 20 MILLIGRAM
     Route: 048
     Dates: start: 20101230, end: 20101230
  46. LENADEX [Suspect]
     Dosage: 20 MILLIGRAM
     Route: 048
     Dates: start: 20110113, end: 20110113
  47. LENADEX [Suspect]
     Dosage: 20 MILLIGRAM
     Route: 048
     Dates: start: 20110120, end: 20110120
  48. LENADEX [Suspect]
     Dosage: 20 MILLIGRAM
     Route: 048
     Dates: start: 20110127, end: 20110127
  49. LENADEX [Suspect]
     Dosage: 20 MILLIGRAM
     Route: 048
     Dates: start: 20110210, end: 20110210
  50. LENADEX [Suspect]
     Dosage: 20 MILLIGRAM
     Route: 048
     Dates: start: 20110217, end: 20110217
  51. LENADEX [Suspect]
     Route: 048
     Dates: start: 20110804, end: 20110818
  52. LENADEX [Suspect]
     Route: 048
     Dates: start: 20110901, end: 20110915
  53. LENADEX [Suspect]
     Route: 048
     Dates: start: 20110929, end: 20111013
  54. LENADEX [Suspect]
     Dosage: 12 MILLIGRAM
     Route: 048
     Dates: start: 20111027, end: 20111027
  55. LENADEX [Suspect]
     Dosage: 12 MILLIGRAM
     Route: 048
     Dates: start: 20111103, end: 20111103
  56. LENADEX [Suspect]
     Dosage: 12 MILLIGRAM
     Route: 048
     Dates: start: 20111110, end: 20111110
  57. LENADEX [Suspect]
     Dosage: 12 MILLIGRAM
     Route: 048
     Dates: start: 20111124, end: 20111124
  58. LENADEX [Suspect]
     Dosage: 12 MILLIGRAM
     Route: 048
     Dates: start: 20111201, end: 20111201
  59. LENADEX [Suspect]
     Dosage: 12 MILLIGRAM
     Route: 048
     Dates: start: 20111208, end: 20111208
  60. LENADEX [Suspect]
     Dosage: 12 MILLIGRAM
     Route: 048
     Dates: start: 20120119, end: 20120119
  61. LENADEX [Suspect]
     Dosage: 12 MILLIGRAM
     Route: 048
     Dates: start: 20120126, end: 20120126
  62. LENADEX [Suspect]
     Dosage: 12 MILLIGRAM
     Route: 048
     Dates: start: 20120202, end: 20120202
  63. LENADEX [Suspect]
     Dosage: 12 MILLIGRAM
     Route: 048
     Dates: start: 20120216, end: 20120216
  64. LENADEX [Suspect]
     Dosage: 12 MILLIGRAM
     Route: 048
     Dates: start: 20120223, end: 20120223
  65. LENADEX [Suspect]
     Dosage: 12 MILLIGRAM
     Route: 048
     Dates: start: 20120301, end: 20120301
  66. LENADEX [Suspect]
     Dosage: 12 MILLIGRAM
     Route: 048
     Dates: start: 20120315, end: 20120315
  67. LENADEX [Suspect]
     Dosage: 12 MILLIGRAM
     Route: 048
     Dates: start: 20120322, end: 20120322
  68. LENADEX [Suspect]
     Dosage: 12 MILLIGRAM
     Route: 048
     Dates: start: 20120329, end: 20120329
  69. LENADEX [Suspect]
     Dosage: 12 MILLIGRAM
     Route: 048
     Dates: start: 20120412, end: 20120412
  70. LENADEX [Suspect]
     Dosage: 12 MILLIGRAM
     Route: 048
     Dates: start: 20120419, end: 20120419
  71. LENADEX [Suspect]
     Dosage: 12 MILLIGRAM
     Route: 048
     Dates: start: 20120426, end: 20120426
  72. LENADEX [Suspect]
     Dosage: 12 MILLIGRAM
     Route: 048
     Dates: start: 20120510, end: 20120510
  73. LENADEX [Suspect]
     Dosage: 12 MILLIGRAM
     Route: 048
     Dates: start: 20120517, end: 20120517
  74. LENADEX [Suspect]
     Dosage: 12 MILLIGRAM
     Route: 048
     Dates: start: 20120524, end: 20120524
  75. LENADEX [Suspect]
     Dosage: 12 MILLIGRAM
     Route: 048
     Dates: start: 20120705, end: 20120705
  76. LENADEX [Suspect]
     Dosage: 12 MILLIGRAM
     Route: 048
     Dates: start: 20120712, end: 20120712
  77. LENADEX [Suspect]
     Dosage: 12 MILLIGRAM
     Route: 048
     Dates: start: 20120719, end: 20120719
  78. LENADEX [Suspect]
     Dosage: 12 MILLIGRAM
     Route: 048
     Dates: start: 20120802, end: 20120802
  79. LENADEX [Suspect]
     Dosage: 12 MILLIGRAM
     Route: 048
     Dates: start: 20120809, end: 20120809
  80. LENADEX [Suspect]
     Dosage: 12 MILLIGRAM
     Route: 048
     Dates: start: 20120816, end: 20120816
  81. LENADEX [Suspect]
     Dosage: 12 MILLIGRAM
     Route: 048
     Dates: start: 20120830, end: 20120830
  82. LENADEX [Suspect]
     Dosage: 12 MILLIGRAM
     Route: 048
     Dates: start: 20120916, end: 20120916
  83. LENADEX [Suspect]
     Dosage: 12 MILLIGRAM
     Route: 048
     Dates: start: 20120913, end: 20120913
  84. LENADEX [Suspect]
     Dosage: 12 MILLIGRAM
     Route: 048
     Dates: start: 20120927, end: 20120927
  85. LENADEX [Suspect]
     Dosage: 12 MILLIGRAM
     Route: 048
     Dates: start: 20121004, end: 20121004
  86. LENADEX [Suspect]
     Dosage: 12 MILLIGRAM
     Route: 048
     Dates: start: 20121011, end: 20121011
  87. LENADEX [Suspect]
     Dosage: 12 MILLIGRAM
     Route: 048
     Dates: start: 20121220, end: 20130103
  88. LENADEX [Suspect]
     Dosage: 12 MILLIGRAM
     Route: 048
     Dates: start: 20130117, end: 20130131
  89. LENADEX [Suspect]
     Dosage: 12 MILLIGRAM
     Route: 048
     Dates: start: 20130214, end: 20130228
  90. LENADEX [Suspect]
     Dosage: 12 MILLIGRAM
     Route: 048
     Dates: start: 20130314, end: 20130328
  91. LENADEX [Suspect]
     Dosage: 12 MILLIGRAM
     Route: 048
     Dates: start: 20130411, end: 20130425
  92. LENADEX [Suspect]
     Dosage: 12 MILLIGRAM
     Route: 048
     Dates: start: 20130509, end: 20130523
  93. LENADEX [Suspect]
     Dosage: 12 MILLIGRAM
     Route: 048
     Dates: start: 20130606, end: 20130606
  94. LENADEX [Suspect]
     Dosage: 12 MILLIGRAM
     Route: 048
     Dates: start: 20130704, end: 20130718
  95. LENADEX [Suspect]
     Dosage: 12 MILLIGRAM
     Route: 048
     Dates: start: 20130731, end: 20130731
  96. LENADEX [Suspect]
     Dosage: 12 MILLIGRAM
     Route: 048
     Dates: start: 20130807, end: 20130814
  97. LENADEX [Suspect]
     Dosage: 12 MILLIGRAM
     Route: 048
     Dates: start: 20130828, end: 20130911
  98. LENADEX [Suspect]
     Dosage: 12 MILLIGRAM
     Route: 048
     Dates: start: 20130925, end: 20131009
  99. LENADEX [Suspect]
     Dosage: 12 MILLIGRAM
     Route: 048
     Dates: start: 20131023, end: 20131030
  100. AMLODIN [Concomitant]
     Indication: HYPERTENSION
     Dosage: 5 MILLIGRAM
     Route: 048
     Dates: start: 20090708, end: 20121026
  101. LOXONIN [Concomitant]
     Indication: PRODUCT USED FOR UNKNOWN INDICATION
     Dosage: 120 MILLIGRAM
     Route: 048
     Dates: start: 20061218, end: 20110112
  102. LOXONIN [Concomitant]
     Dosage: 120 MILLIGRAM
     Route: 048
     Dates: start: 20110309, end: 20110406
  103. LOXONIN [Concomitant]
     Dosage: 180 MILLIGRAM
     Route: 048
     Dates: start: 20110407, end: 20110510
  104. LOXONIN [Concomitant]
     Dosage: 120 MILLIGRAM
     Route: 048
     Dates: start: 20110511, end: 20110802
  105. URSO [Concomitant]
     Indication: HEPATIC CIRRHOSIS
     Dosage: 600 MILLIGRAM
     Route: 048
     Dates: start: 20061218, end: 20110112
  106. URSO [Concomitant]
     Dosage: 400 MILLIGRAM
     Route: 048
     Dates: start: 20110113, end: 20121026
  107. GLYCYRON [Concomitant]
     Indication: HEPATIC CIRRHOSIS
     Dosage: 6 DOSAGE FORMS
     Route: 048
     Dates: start: 20061218, end: 20101117
  108. GLYCYRON [Concomitant]
     Dosage: 6 DOSAGE FORMS
     Route: 048
     Dates: start: 20101118, end: 20121026
  109. LIVACT [Concomitant]
     Indication: HEPATIC CIRRHOSIS
     Dosage: 12.45 GRAM
     Route: 048
     Dates: start: 20061218, end: 20101117
  110. LIVACT [Concomitant]
     Dosage: 8.3 GRAM
     Route: 048
     Dates: start: 20101118, end: 20110406
  111. LIVACT [Concomitant]
     Dosage: 2 DOSAGE FORMS
     Route: 048
     Dates: start: 20110407, end: 20121026
  112. OMEPRAL [Concomitant]
     Indication: PRODUCT USED FOR UNKNOWN INDICATION
     Dosage: 20 MILLIGRAM
     Route: 048
     Dates: start: 20070425, end: 20120214
  113. OXYCONTIN [Concomitant]
     Indication: PRODUCT USED FOR UNKNOWN INDICATION
     Dosage: 20 MILLIGRAM
     Route: 048
     Dates: start: 20100414, end: 20110112
  114. OXYCONTIN [Concomitant]
     Dosage: 10 MILLIGRAM
     Route: 048
     Dates: start: 20110113, end: 20110802
  115. OXYCONTIN [Concomitant]
     Dosage: 15 MILLIGRAM
     Route: 048
     Dates: start: 20110803, end: 20110927
  116. OXYCONTIN [Concomitant]
     Dosage: 10 MILLIGRAM
     Route: 048
     Dates: start: 20110928, end: 20121023
  117. OXYCONTIN [Concomitant]
     Dosage: 20 MILLIGRAM
     Route: 048
     Dates: start: 20131024, end: 20131026
  118. BAYASPIRIN [Concomitant]
     Indication: PROPHYLAXIS
     Dosage: 100 MILLIGRAM
     Route: 048
     Dates: start: 20101018, end: 20110112
  119. MILMAG [Concomitant]
     Indication: PRODUCT USED FOR UNKNOWN INDICATION
     Dosage: 1050 MILLIGRAM
     Route: 048
     Dates: start: 20101019, end: 20101108
  120. PRIMPERAN [Concomitant]
     Indication: PRODUCT USED FOR UNKNOWN INDICATION
     Dosage: 5 MILLIGRAM
     Route: 048
     Dates: start: 20101019, end: 20101019
  121. MAGNESIUM OXIDE [Concomitant]
     Indication: PRODUCT USED FOR UNKNOWN INDICATION
     Dosage: 1 GRAM
     Route: 048
     Dates: start: 20101228, end: 20110406
  122. MYSLEE [Concomitant]
     Indication: PROPHYLAXIS
     Dosage: 5 MILLIGRAM
     Route: 048
     Dates: start: 20110407, end: 20110925
  123. LOBU [Concomitant]
     Indication: PRODUCT USED FOR UNKNOWN INDICATION
     Dosage: 120 MILLIGRAM
     Route: 048
     Dates: start: 20110803, end: 20110927
  124. LOBU [Concomitant]
     Dosage: 180 MILLIGRAM
     Route: 048
     Dates: start: 20110928, end: 20121026
  125. NEO-MINOPHAGEN C [Concomitant]
     Indication: HEPATIC CIRRHOSIS
     Route: 041
     Dates: start: 20101018, end: 20101108
  126. NEO-MINOPHAGEN C [Concomitant]
     Route: 041
     Dates: start: 20110407, end: 20111019
  127. PARIET [Concomitant]
     Indication: PRODUCT USED FOR UNKNOWN INDICATION
     Dosage: 10 MILLIGRAM
     Route: 048
     Dates: start: 20120215, end: 20120312
  128. ZOLPIDEM TARTRATE [Concomitant]
     Indication: PROPHYLAXIS
     Dosage: 10 MILLIGRAM
     Route: 048
     Dates: start: 20120926, end: 20130212
  129. RABEPRAZOLE [Concomitant]
     Indication: PRODUCT USED FOR UNKNOWN INDICATION
     Dosage: 10 MILLIGRAM
     Route: 048
     Dates: start: 20130313, end: 20131026

REACTIONS (16)
  - Arrhythmia [Recovering/Resolving]
  - Liver disorder [Recovering/Resolving]
  - Hiccups [Recovered/Resolved]
  - Hiccups [Recovered/Resolved]
  - Upper respiratory tract inflammation [Recovering/Resolving]
  - Insomnia [Recovering/Resolving]
  - Hypoaesthesia [Not Recovered/Not Resolved]
  - Neutrophil count decreased [Recovered/Resolved]
  - Dysgeusia [Recovering/Resolving]
  - Neutrophil count decreased [Recovered/Resolved]
  - Muscle spasms [Recovering/Resolving]
  - Chronic sinusitis [Recovered/Resolved]
  - Nasopharyngitis [Recovered/Resolved]
  - Neutrophil count decreased [Not Recovered/Not Resolved]
  - Hiccups [Recovered/Resolved]
  - Periodontitis [Recovering/Resolving]
